FAERS Safety Report 5637518-X (Version None)
Quarter: 2008Q1

REPORT INFORMATION
  Report Type: 
  Country: None (occurrence: None)
  Receive Date: 20080225
  Receipt Date: 20080214
  Transmission Date: 20080703
  Serious: Yes (Other)
  Sender: FDA-Public Use
  Company Number: GB-PFIZER INC-2008014812

PATIENT

DRUGS (1)
  1. ISTIN [Suspect]
     Route: 048

REACTIONS (2)
  - HALLUCINATION [None]
  - VISUAL DISTURBANCE [None]
